FAERS Safety Report 6149858-9 (Version None)
Quarter: 2009Q2

REPORT INFORMATION
  Report Type: 
  Country: None (occurrence: None)
  Receive Date: 20090407
  Receipt Date: 20090324
  Transmission Date: 20091009
  Serious: Yes (Death, Life-Threatening)
  Sender: FDA-Public Use
  Company Number: 2009000393

PATIENT
  Age: 79 Year
  Sex: Male

DRUGS (4)
  1. ERLOTINIB (ERLOTINIB) (TABLET) (ERLOTINIB) [Suspect]
     Indication: LUNG ADENOCARCINOMA
     Dosage: 150 MG, QD, ORAL
     Route: 048
     Dates: start: 20081215, end: 20090120
  2. GASTER D [Concomitant]
  3. MAGMITT [Concomitant]
  4. BEZATOL SR [Concomitant]

REACTIONS (3)
  - DISSEMINATED INTRAVASCULAR COAGULATION [None]
  - EPISTAXIS [None]
  - RASH [None]
